FAERS Safety Report 23994836 (Version 1)
Quarter: 2024Q2

REPORT INFORMATION
  Report Type: Spontaneous
  Country: MX (occurrence: MX)
  Receive Date: 20240620
  Receipt Date: 20240620
  Transmission Date: 20240716
  Serious: Yes (Other)
  Sender: FDA-Public Use
  Company Number: MX-Merck Healthcare KGaA-2024032555

PATIENT
  Sex: Female

DRUGS (2)
  1. CLADRIBINE [Suspect]
     Active Substance: CLADRIBINE
     Indication: Relapsing-remitting multiple sclerosis
     Dosage: YEAR FIRST WEEK FIRST THERAPY
     Dates: start: 20240408
  2. CLADRIBINE [Suspect]
     Active Substance: CLADRIBINE
     Dosage: YEAR FIRST WEEK SECOND THERAPY
     Dates: start: 20240513

REACTIONS (3)
  - Suicide attempt [Unknown]
  - Mental disorder [Unknown]
  - Depressive symptom [Unknown]
